FAERS Safety Report 9746532 (Version 3)
Quarter: 2014Q1

REPORT INFORMATION
  Report Type: Spontaneous
  Country: US (occurrence: US)
  Receive Date: 20131211
  Receipt Date: 20140130
  Transmission Date: 20141002
  Serious: Yes (Other)
  Sender: FDA-Public Use
  Company Number: US-UCBSA-105067

PATIENT
  Sex: Male
  Weight: 159.09 kg

DRUGS (12)
  1. CIMZIA [Suspect]
     Indication: CROHN^S DISEASE
     Route: 058
  2. SIMVASTATIN [Concomitant]
     Dosage: DOSE UNKNOWN
     Route: 048
  3. GLIPIZIDE [Concomitant]
     Dosage: DOSE UNKNOWN
     Route: 048
  4. COUMADIN [Concomitant]
     Dosage: DOSE UNKNOWN
     Route: 048
  5. ALBUTEROL INHALER [Concomitant]
     Dosage: DOSE AS NEEDED; ROUTE: INHALER
  6. ADVAIR [Concomitant]
     Dosage: DOSE UNKNOWN ; INHALER
  7. OXYCODONE [Concomitant]
     Indication: BACK PAIN
     Dosage: DOSE UNKNOWN
     Route: 048
  8. GABAPENTINE [Concomitant]
     Dosage: DOSE UNKNOWN
     Route: 048
  9. LISINOPRIL [Concomitant]
     Indication: BLOOD PRESSURE
     Dosage: DOSE UNKNOWN
     Route: 048
  10. LISINOPRIL [Concomitant]
     Indication: BLOOD PRESSURE
     Dosage: DOSE UNKNOWN
     Route: 048
  11. LASIX [Concomitant]
     Indication: BLOOD ANTIDIURETIC HORMONE
     Dosage: DOSE UNKNOWN
     Route: 048
  12. LASIX [Concomitant]
     Indication: BLOOD ANTIDIURETIC HORMONE
     Dosage: DOSE UNKNOWN
     Route: 048

REACTIONS (4)
  - Abdominal infection [Recovering/Resolving]
  - Cellulitis [Recovering/Resolving]
  - Sepsis [Unknown]
  - Drug dose omission [Unknown]
